FAERS Safety Report 6957490-X (Version None)
Quarter: 2010Q3

REPORT INFORMATION
  Report Type: 
  Country: None (occurrence: None)
  Receive Date: 20100831
  Receipt Date: 20100819
  Transmission Date: 20110219
  Serious: Yes (Other)
  Sender: FDA-Public Use
  Company Number: US-CELGENEUS-163-21880-10081846

PATIENT
  Sex: Female

DRUGS (3)
  1. REVLIMID [Suspect]
     Indication: MULTIPLE MYELOMA
     Dosage: 25-15MG
     Dates: start: 20081001
  2. REVLIMID [Suspect]
     Route: 048
     Dates: start: 20080201
  3. REVLIMID [Suspect]
     Route: 048
     Dates: start: 20100819

REACTIONS (7)
  - FATIGUE [None]
  - HYPOAESTHESIA [None]
  - MALIGNANT MELANOMA [None]
  - NAUSEA [None]
  - PARAESTHESIA [None]
  - VAGINAL HAEMORRHAGE [None]
  - WEIGHT DECREASED [None]
